FAERS Safety Report 9550164 (Version 1)
Quarter: 2013Q3

REPORT INFORMATION
  Report Type: Spontaneous
  Country: FR (occurrence: FR)
  Receive Date: 20130924
  Receipt Date: 20130924
  Transmission Date: 20140515
  Serious: Yes (Life-Threatening, Hospitalization)
  Sender: FDA-Public Use
  Company Number: PHHY2013FR106243

PATIENT
  Age: 76 Year
  Sex: Female

DRUGS (4)
  1. ACLASTA [Suspect]
     Indication: OSTEOPOROSIS POSTMENOPAUSAL
     Dosage: 5 MG, ONCE
     Route: 042
     Dates: start: 201010
  2. SERETIDE [Concomitant]
     Dosage: UNK UKN, UNK
  3. TARDYFERON [Concomitant]
     Dosage: UNK UKN, UNK
  4. PANTOPRAZOLE [Concomitant]

REACTIONS (2)
  - Coma [Recovered/Resolved]
  - Hypocalcaemia [Recovered/Resolved]
